FAERS Safety Report 7967894-4 (Version None)
Quarter: 2011Q4

REPORT INFORMATION
  Report Type: 
  Country: None (occurrence: None)
  Receive Date: 20111122
  Receipt Date: 20110826
  Transmission Date: 20120403
  Serious: No
  Sender: FDA-Public Use
  Company Number: PHHY2011US64800

PATIENT
  Age: 42 Year
  Sex: Female

DRUGS (4)
  1. FIORICET [Concomitant]
  2. GILENYA [Suspect]
     Indication: MULTIPLE SCLEROSIS
     Dosage: 0.5MG, QD, ORAL
     Route: 048
     Dates: start: 20110622
  3. TRAMADOL HCL [Concomitant]
  4. TOPAMAX [Concomitant]

REACTIONS (4)
  - CERUMEN IMPACTION [None]
  - TINNITUS [None]
  - OTITIS EXTERNA [None]
  - FATIGUE [None]
